FAERS Safety Report 9491011 (Version 2)
Quarter: 2013Q4

REPORT INFORMATION
  Report Type: Spontaneous
  Country: US (occurrence: US)
  Receive Date: 20130830
  Receipt Date: 20131016
  Transmission Date: 20140711
  Serious: No
  Sender: FDA-Public Use
  Company Number: US-PFIZER INC-2013249295

PATIENT
  Age: 55 Year
  Sex: Female
  Weight: 53.06 kg

DRUGS (2)
  1. ADVIL [Suspect]
     Indication: CARPAL TUNNEL SYNDROME
     Dosage: UNK, AS NEEDED
     Route: 048
  2. ZOLOFT [Concomitant]
     Indication: DEPRESSION
     Dosage: UNK

REACTIONS (3)
  - Poor quality drug administered [Unknown]
  - Hypoaesthesia oral [Unknown]
  - Product physical issue [Unknown]
